FAERS Safety Report 7516822-4 (Version None)
Quarter: 2011Q2

REPORT INFORMATION
  Report Type: 
  Country: None (occurrence: None)
  Receive Date: 20110601
  Receipt Date: 20110526
  Transmission Date: 20111010
  Serious: Yes (Hospitalization)
  Sender: FDA-Public Use
  Company Number: PH-MERCK-1105USA03972

PATIENT
  Age: 34 Year
  Sex: Male

DRUGS (2)
  1. HYZAAR [Suspect]
     Indication: ESSENTIAL HYPERTENSION
     Route: 048
     Dates: start: 20110507
  2. VYTORIN [Suspect]
     Indication: DYSLIPIDAEMIA
     Route: 048
     Dates: start: 20110508

REACTIONS (3)
  - HUNGER [None]
  - WEIGHT DECREASED [None]
  - FREQUENT BOWEL MOVEMENTS [None]
